FAERS Safety Report 17911900 (Version 1)
Quarter: 2020Q2

REPORT INFORMATION
  Report Type: Spontaneous
  Country: SI (occurrence: SI)
  Receive Date: 20200618
  Receipt Date: 20200618
  Transmission Date: 20200714
  Serious: Yes (Death, Other)
  Sender: FDA-Public Use
  Company Number: SI-BAYER-2020-110131

PATIENT
  Age: 63 Year
  Sex: Male

DRUGS (4)
  1. NEXAVAR [Suspect]
     Active Substance: SORAFENIB
     Indication: HEPATOCELLULAR CARCINOMA
     Dosage: 200 MG, BID
  2. STIVARGA [Suspect]
     Active Substance: REGORAFENIB
     Indication: HEPATOCELLULAR CARCINOMA
     Dosage: 80 MG, QD FOR 3 WEEKS, FOLLOWED BY 1 WEEK WITHOUT TREATMENT
  3. STIVARGA [Suspect]
     Active Substance: REGORAFENIB
     Indication: HEPATOCELLULAR CARCINOMA
     Dosage: 120 MG, QD FOR 3 WEEKS, FOLLOWED BY 1 WEEK WITHOUT TREATMENT
  4. NEXAVAR [Suspect]
     Active Substance: SORAFENIB
     Indication: HEPATOCELLULAR CARCINOMA
     Dosage: 400 MG, BID

REACTIONS (13)
  - Off label use [None]
  - Metastases to lung [None]
  - Diarrhoea [Recovered/Resolved]
  - Hepatocellular carcinoma [None]
  - Physical deconditioning [None]
  - Rash maculo-papular [Recovering/Resolving]
  - Drug intolerance [None]
  - Hepatic function abnormal [None]
  - Aphthous ulcer [Recovering/Resolving]
  - Hypertension [Recovering/Resolving]
  - Palmar-plantar erythrodysaesthesia syndrome [Recovering/Resolving]
  - Urosepsis [Fatal]
  - Pain [Recovering/Resolving]
